FAERS Safety Report 13292923 (Version 1)
Quarter: 2017Q1

REPORT INFORMATION
  Report Type: Spontaneous
  Country: RU (occurrence: RU)
  Receive Date: 20170303
  Receipt Date: 20170303
  Transmission Date: 20170428
  Serious: Yes (Other)
  Sender: FDA-Public Use
  Company Number: RU-ASTRAZENECA-2017SE22376

PATIENT
  Age: 60 Year
  Sex: Female
  Weight: 78 kg

DRUGS (4)
  1. ISOPTIN [Concomitant]
     Active Substance: VERAPAMIL HYDROCHLORIDE
  2. SYMBICORT [Suspect]
     Active Substance: BUDESONIDE\FORMOTEROL FUMARATE DIHYDRATE
     Indication: ASTHMA
     Dosage: 160/4.5 MICROGRAMS 2 TIMES A DAY
     Route: 055
  3. PRESTARIUM [Concomitant]
     Active Substance: PERINDOPRIL
  4. KESTINE [Concomitant]
     Active Substance: EBASTINE

REACTIONS (1)
  - Myocardial infarction [Recovered/Resolved with Sequelae]
